FAERS Safety Report 4701045-4 (Version None)
Quarter: 2005Q2

REPORT INFORMATION
  Report Type: 
  Country: None (occurrence: None)
  Receive Date: 20050628
  Receipt Date: 20050615
  Transmission Date: 20051028
  Serious: Yes (Disabling)
  Sender: FDA-Public Use
  Company Number: GB-JNJFOC-20050604099

PATIENT
  Age: 81 Year
  Sex: Female
  Weight: 55 kg

DRUGS (5)
  1. REMICADE [Suspect]
     Indication: RHEUMATOID ARTHRITIS
     Route: 042
  2. METHOTREXATE [Concomitant]
     Route: 049
     Dates: start: 20020701
  3. ATENOLOL [Concomitant]
     Route: 049
     Dates: start: 20020601
  4. ZOTON [Concomitant]
     Route: 049
  5. FOLIC ACID [Concomitant]
     Route: 049
     Dates: start: 20020701

REACTIONS (2)
  - SYSTEMIC LUPUS ERYTHEMATOSUS [None]
  - WHITE BLOOD CELL COUNT DECREASED [None]
